FAERS Safety Report 7053137-5 (Version None)
Quarter: 2010Q4

REPORT INFORMATION
  Report Type: 
  Country: None (occurrence: None)
  Receive Date: 20101020
  Receipt Date: 20101012
  Transmission Date: 20110411
  Serious: Yes (Other)
  Sender: FDA-Public Use
  Company Number: US-JNJFOC-20100906900

PATIENT
  Sex: Female
  Weight: 58.97 kg

DRUGS (2)
  1. ORTHO EVRA [Suspect]
     Indication: MENSTRUATION IRREGULAR
     Route: 062
  2. ORTHO EVRA [Suspect]
     Indication: CONTRACEPTION
     Route: 062

REACTIONS (9)
  - BREAST ENLARGEMENT [None]
  - FATIGUE [None]
  - LOCALISED OEDEMA [None]
  - MOOD ALTERED [None]
  - NAUSEA [None]
  - NOCTURIA [None]
  - OFF LABEL USE [None]
  - VOMITING [None]
  - WEIGHT INCREASED [None]
